FAERS Safety Report 6521083-9 (Version None)
Quarter: 2009Q4

REPORT INFORMATION
  Report Type: 
  Country: None (occurrence: None)
  Receive Date: 20091229
  Receipt Date: 20091221
  Transmission Date: 20100525
  Serious: Yes (Hospitalization, Other)
  Sender: FDA-Public Use
  Company Number: US-PFIZER INC-2009230535

PATIENT
  Sex: Female

DRUGS (5)
  1. SOLU-MEDROL [Suspect]
     Indication: MULTIPLE SCLEROSIS
     Dosage: UNK UG, UNK
     Route: 042
     Dates: start: 20090401, end: 20090401
  2. SOLU-MEDROL [Suspect]
     Dosage: UNK
     Route: 042
     Dates: start: 20090601, end: 20090601
  3. REBIF [Suspect]
     Indication: MULTIPLE SCLEROSIS
     Dosage: 44 MCG, 3 IN 1 WEEK
     Route: 058
     Dates: start: 20081212
  4. LYRICA [Concomitant]
     Dosage: UNK
  5. VITAMINS [Concomitant]
     Dosage: UNK

REACTIONS (13)
  - ABDOMINAL PAIN [None]
  - ANAPHYLACTIC REACTION [None]
  - CAMPYLOBACTER INTESTINAL INFECTION [None]
  - COMPLEX PARTIAL SEIZURES [None]
  - DIARRHOEA [None]
  - DIZZINESS [None]
  - DYSARTHRIA [None]
  - DYSGRAPHIA [None]
  - INFLUENZA LIKE ILLNESS [None]
  - NAUSEA [None]
  - SWELLING [None]
  - URTICARIA [None]
  - VOMITING [None]
